FAERS Safety Report 4808893-0 (Version None)
Quarter: 2005Q4

REPORT INFORMATION
  Report Type: 
  Country: None (occurrence: None)
  Receive Date: 20051021
  Receipt Date: 20021022
  Transmission Date: 20060501
  Serious: Yes (Life-Threatening)
  Sender: FDA-Public Use
  Company Number: DE_021009894

PATIENT
  Age: 65 Year
  Sex: Male

DRUGS (5)
  1. ZYPREXA [Suspect]
     Indication: MAJOR DEPRESSION
     Dosage: 10 MG/ 1 DAY
     Dates: start: 20010618, end: 20010618
  2. ATOSIL (ISOPROMETHAZINE HYDROCHLORIDE) [Concomitant]
  3. ZOLOFT [Concomitant]
  4. LORAZEPAM [Concomitant]
  5. XIMOVAN (ZOPICLONE) [Concomitant]

REACTIONS (1)
  - NEUTROPENIA [None]
